FAERS Safety Report 6271046-6 (Version None)
Quarter: 2009Q3

REPORT INFORMATION
  Report Type: 
  Country: None (occurrence: None)
  Receive Date: 20090716
  Receipt Date: 20090707
  Transmission Date: 20100115
  Serious: Yes (Hospitalization, Other)
  Sender: FDA-Public Use
  Company Number: DE-ABBOTT-09P-062-0583786-00

PATIENT
  Sex: Male

DRUGS (7)
  1. KALETRA [Suspect]
     Indication: HIV INFECTION
     Route: 048
     Dates: start: 20080715, end: 20090312
  2. COTRIM [Concomitant]
     Indication: DRUG USE FOR UNKNOWN INDICATION
  3. MIRTAZEPAM [Concomitant]
     Indication: DRUG USE FOR UNKNOWN INDICATION
  4. DELIX [Concomitant]
     Indication: DRUG USE FOR UNKNOWN INDICATION
     Dosage: PAUSE
  5. FLUCONAZOLE [Concomitant]
     Indication: DRUG USE FOR UNKNOWN INDICATION
  6. OMEPRAZOL [Concomitant]
     Indication: DRUG USE FOR UNKNOWN INDICATION
  7. FERRONASOL DUODENAL [Concomitant]
     Indication: DRUG USE FOR UNKNOWN INDICATION

REACTIONS (28)
  - ABDOMINAL PAIN [None]
  - AFFECT LABILITY [None]
  - AGGRESSION [None]
  - ASTHENIA [None]
  - BODY TEMPERATURE INCREASED [None]
  - CEREBRAL ATROPHY [None]
  - CEREBRAL DISORDER [None]
  - CEREBRAL VENTRICLE DILATATION [None]
  - COGNITIVE DISORDER [None]
  - DEPRESSION [None]
  - DIZZINESS [None]
  - GASTRITIS [None]
  - GASTROINTESTINAL DISORDER [None]
  - GENERAL PHYSICAL HEALTH DETERIORATION [None]
  - HELICOBACTER INFECTION [None]
  - HEPATIC NEOPLASM MALIGNANT [None]
  - HYPOPHAGIA [None]
  - INFECTION PARASITIC [None]
  - MALABSORPTION [None]
  - MERYCISM [None]
  - MICROANGIOPATHY [None]
  - OESOPHAGEAL CANDIDIASIS [None]
  - POLYNEUROPATHY [None]
  - PRURITUS [None]
  - SCOLIOSIS [None]
  - SLEEP DISORDER [None]
  - WEIGHT DECREASED [None]
  - WHIPPLE'S DISEASE [None]
